FAERS Safety Report 6306514-1 (Version None)
Quarter: 2009Q3

REPORT INFORMATION
  Report Type: 
  Country: None (occurrence: None)
  Receive Date: 20090812
  Receipt Date: 20090731
  Transmission Date: 20100115
  Serious: Yes (Hospitalization)
  Sender: FDA-Public Use
  Company Number: US-WATSON-2009-06216

PATIENT
  Age: 17 Year
  Sex: Female

DRUGS (1)
  1. LEVETIRACETAM (WATSON LABORATORIES) [Suspect]
     Indication: CONVULSION
     Dosage: 250 MG, BID
     Route: 048

REACTIONS (2)
  - RENAL FAILURE [None]
  - TUBULOINTERSTITIAL NEPHRITIS [None]
